FAERS Safety Report 9707076 (Version 1)
Quarter: 2013Q4

REPORT INFORMATION
  Report Type: Spontaneous
  Country: US (occurrence: None)
  Receive Date: 20131122
  Receipt Date: 20131122
  Transmission Date: 20140711
  Serious: Yes (Life-Threatening, Disabling, Other)
  Sender: FDA-Public Use
  Company Number: None

PATIENT
  Sex: 0

DRUGS (2)
  1. POTASSIUM [Suspect]
     Indication: HYPOKALAEMIA
     Route: 048
     Dates: end: 20131110
  2. METFORMIN [Suspect]
     Indication: DIABETES MELLITUS

REACTIONS (11)
  - Diarrhoea [None]
  - Heart rate irregular [None]
  - Heart rate decreased [None]
  - Myalgia [None]
  - Abdominal pain upper [None]
  - Fatigue [None]
  - Asthenia [None]
  - Dizziness [None]
  - Mood swings [None]
  - Insomnia [None]
  - Vomiting [None]
